FAERS Safety Report 5707219-8 (Version None)
Quarter: 2008Q2

REPORT INFORMATION
  Report Type: 
  Country: None (occurrence: None)
  Receive Date: 20080416
  Receipt Date: 20080408
  Transmission Date: 20081010
  Serious: Yes (Death)
  Sender: FDA-Public Use
  Company Number: CA-MERCK-0804CAN00041

PATIENT
  Sex: Male

DRUGS (6)
  1. JANUVIA [Suspect]
     Indication: BLOOD GLUCOSE
     Route: 048
     Dates: start: 20080404, end: 20080407
  2. METFORMIN [Concomitant]
     Indication: DIABETES MELLITUS
     Route: 065
     Dates: start: 20060828, end: 20080407
  3. ROSUVASTATIN CALCIUM [Concomitant]
     Indication: HYPERLIPIDAEMIA
     Route: 065
     Dates: start: 20061205, end: 20080407
  4. ASPIRIN [Concomitant]
     Indication: DIABETES MELLITUS
     Route: 065
     Dates: start: 20061205, end: 20080407
  5. VALSARTAN [Concomitant]
     Indication: HYPERTENSION
     Route: 065
     Dates: start: 20070220, end: 20080407
  6. RABEPRAZOLE SODIUM [Concomitant]
     Indication: GASTROOESOPHAGEAL REFLUX DISEASE
     Route: 065
     Dates: start: 20061205, end: 20080407

REACTIONS (1)
  - MYOCARDIAL INFARCTION [None]
